FAERS Safety Report 7755416-2 (Version None)
Quarter: 2011Q3

REPORT INFORMATION
  Report Type: 
  Country: None (occurrence: None)
  Receive Date: 20110830
  Receipt Date: 20110728
  Transmission Date: 20111222
  Serious: Yes (Hospitalization)
  Sender: FDA-Public Use
  Company Number: 2011CP000133

PATIENT
  Age: 84 Year
  Sex: Female
  Weight: 70 kg

DRUGS (1)
  1. OFIRMEV [Suspect]
     Indication: PAIN
     Dosage: 1000 MG;QID;IV
     Route: 042
     Dates: start: 20080701

REACTIONS (1)
  - HEPATIC ENZYME INCREASED [None]
